FAERS Safety Report 14057503 (Version 1)
Quarter: 2017Q4

REPORT INFORMATION
  Report Type: Spontaneous
  Country: FR (occurrence: FR)
  Receive Date: 20171006
  Receipt Date: 20171006
  Transmission Date: 20180321
  Serious: Yes (Other)
  Sender: FDA-Public Use
  Company Number: FR-AMGEN-FRASP2017111816

PATIENT
  Age: 92 Year
  Sex: Female
  Weight: 66 kg

DRUGS (4)
  1. EFFEXOR [Concomitant]
     Active Substance: VENLAFAXINE HYDROCHLORIDE
     Indication: DEPRESSION
     Dosage: 75 MG, QD
  2. TEMESTA (LORAZEPAM) [Concomitant]
     Active Substance: LORAZEPAM
     Dosage: 1 MG, QD
  3. PROLIA [Suspect]
     Active Substance: DENOSUMAB
     Indication: OSTEOPOROSIS
     Dosage: 60 MG, UNK
     Route: 058
     Dates: start: 20170401, end: 20170401
  4. DEPAMIDE [Concomitant]
     Active Substance: VALPROMIDE
     Dosage: 300 MG, QD

REACTIONS (6)
  - Nausea [Recovered/Resolved]
  - Abdominal pain [Recovered/Resolved]
  - Respiratory disorder [Unknown]
  - Pruritus generalised [Recovered/Resolved]
  - Pain [Recovered/Resolved]
  - Choking sensation [Unknown]

NARRATIVE: CASE EVENT DATE: 20170401
